FAERS Safety Report 10656990 (Version 2)
Quarter: 2014Q4

REPORT INFORMATION
  Report Type: Spontaneous
  Country: FR (occurrence: None)
  Receive Date: 20141215
  Receipt Date: 20141216
  Transmission Date: 20150529
  Serious: Yes (Hospitalization, Other)
  Sender: FDA-Public Use
  Company Number: 2014-FR-016284

PATIENT
  Age: 40 Year
  Sex: Female

DRUGS (1)
  1. XYREM [Suspect]
     Active Substance: SODIUM OXYBATE
     Indication: PRODUCT USED FOR UNKNOWN INDICATION
     Dates: start: 201406, end: 2014

REACTIONS (7)
  - Major depression [None]
  - Multiple fractures [None]
  - Off label use [None]
  - Hallucination [None]
  - Delirium [None]
  - Suicide attempt [None]
  - Overdose [None]

NARRATIVE: CASE EVENT DATE: 2014
